FAERS Safety Report 7502557-0 (Version None)
Quarter: 2011Q1

REPORT INFORMATION
  Report Type: 
  Country: None (occurrence: None)
  Receive Date: 20110318
  Receipt Date: 20101011
  Transmission Date: 20110831
  Serious: Yes (Other)
  Sender: FDA-Public Use
  Company Number: 2010SP049428

PATIENT
  Age: 53 Year
  Sex: Male

DRUGS (3)
  1. PEG-INTRON [Suspect]
     Indication: HEPATITIS C
     Dosage: 120 MCG;QW;SC
     Route: 058
     Dates: start: 20100402
  2. RIBASPHERE [Suspect]
     Indication: HEPATITIS C
     Dosage: 1000 MG;QD;PO, 600 MG;QD;PO, 1000 MG;QD;PO
     Route: 048
     Dates: start: 20100513
  3. RIBASPHERE [Suspect]
     Indication: HEPATITIS C
     Dosage: 1000 MG;QD;PO, 600 MG;QD;PO, 1000 MG;QD;PO
     Route: 048
     Dates: start: 20100402

REACTIONS (7)
  - THROMBOCYTOPENIA [None]
  - DIZZINESS [None]
  - ALOPECIA [None]
  - GASTROOESOPHAGEAL REFLUX DISEASE [None]
  - DRUG DOSE OMISSION [None]
  - HAEMATOCHEZIA [None]
  - ASTHENIA [None]
